FAERS Safety Report 5193957-5 (Version None)
Quarter: 2006Q4

REPORT INFORMATION
  Report Type: 
  Country: None (occurrence: None)
  Receive Date: 20061222
  Receipt Date: 20061213
  Transmission Date: 20070319
  Serious: Yes (Hospitalization)
  Sender: FDA-Public Use
  Company Number: 233827

PATIENT
  Age: 4 Year
  Sex: Female
  Weight: 26.4 kg

DRUGS (2)
  1. NUTROPIN AQ [Suspect]
     Indication: HYPOPITUITARISM
     Dosage: 0.5 MG, 7/WEEK
     Dates: start: 20020704
  2. DESMOPRESSIN (DESMOPRESSIN ACETATE) [Concomitant]

REACTIONS (2)
  - PNEUMONIA [None]
  - PYELONEPHRITIS [None]
